FAERS Safety Report 7487600-X (Version None)
Quarter: 2011Q2

REPORT INFORMATION
  Report Type: 
  Country: None (occurrence: None)
  Receive Date: 20110518
  Receipt Date: 20101029
  Transmission Date: 20111010
  Serious: No
  Sender: FDA-Public Use
  Company Number: US-AMGEN-USASP2010002328

PATIENT
  Sex: Female

DRUGS (9)
  1. PROLIA [Suspect]
     Indication: OSTEOPOROSIS POSTMENOPAUSAL
     Dosage: UNK UNK, Q6MO
     Dates: start: 20101027
  2. MELPHALAN HYDROCHLORIDE [Concomitant]
  3. CALCIUM CARBONATE [Concomitant]
  4. FERROUS SULFATE TAB [Concomitant]
  5. ZOCOR [Concomitant]
  6. VITAMIN A [Concomitant]
  7. BENTYL [Concomitant]
  8. IMURAN [Concomitant]
  9. MULTIVITAMIN                       /00097801/ [Concomitant]

REACTIONS (5)
  - MUSCULOSKELETAL PAIN [None]
  - NECK PAIN [None]
  - PAIN [None]
  - FEELING ABNORMAL [None]
  - PAIN IN EXTREMITY [None]
